FAERS Safety Report 5148493-9 (Version None)
Quarter: 2006Q4

REPORT INFORMATION
  Report Type: 
  Country: None (occurrence: None)
  Receive Date: 20061007
  Receipt Date: 20061101
  Transmission Date: 20070319
  Serious: Yes (Life-Threatening, Hospitalization, Other)
  Sender: FDA-Public Use
  Company Number: 2006S1000165

PATIENT
  Age: 6 Day
  Sex: Male

DRUGS (13)
  1. NITRIC OXIDE [Suspect]
     Indication: LUNG DISORDER
     Dosage: 5 PPM; INH_GAS; INH; CONT
     Route: 055
     Dates: start: 20060810, end: 20060819
  2. NITRIC OXIDE [Suspect]
     Indication: PROPHYLAXIS
     Dosage: 5 PPM; INH_GAS; INH; CONT
     Route: 055
     Dates: start: 20060810, end: 20060819
  3. AMPICILLIN [Concomitant]
  4. AMIKACIN [Concomitant]
  5. MICONAZOLE [Concomitant]
  6. FENTANYL [Concomitant]
  7. INSULIN (INSULIN) [Concomitant]
  8. CAFFEINE (CAFFEINE) [Concomitant]
  9. FLUCONAZOLE [Concomitant]
  10. NYSTATIN [Concomitant]
  11. NYSTATIN [Concomitant]
  12. FENTANYL [Concomitant]
  13. DOPAMINE HCL [Concomitant]

REACTIONS (4)
  - NECROTISING ENTEROCOLITIS NEONATAL [None]
  - PATENT DUCTUS ARTERIOSUS [None]
  - PHYSICAL EXAMINATION ABNORMAL [None]
  - SKIN DISCOLOURATION [None]
